FAERS Safety Report 8369562-6 (Version None)
Quarter: 2012Q2

REPORT INFORMATION
  Report Type: 
  Country: None (occurrence: None)
  Receive Date: 20120518
  Receipt Date: 20120514
  Transmission Date: 20120825
  Serious: Yes (Hospitalization)
  Sender: FDA-Public Use
  Company Number: US-BAYER-201021947NA

PATIENT
  Age: 17 Year
  Sex: Female
  Weight: 50.794 kg

DRUGS (8)
  1. ZOLPIDEM [Concomitant]
     Dosage: 10 MG, UNK
     Route: 048
     Dates: start: 20080919
  2. YAZ [Suspect]
     Indication: MENSTRUATION IRREGULAR
     Dosage: UNK UNK, QD
     Route: 048
     Dates: start: 20080214, end: 20080928
  3. YAZ [Suspect]
     Indication: ACNE
  4. ZITHROMAX [Concomitant]
  5. ZITHROMAX [Concomitant]
  6. OMNICEF [Concomitant]
     Indication: EAR PAIN
     Dosage: 600 MG, QD
     Dates: start: 20080919
  7. AURALGAN [Concomitant]
  8. DUAC [Concomitant]
     Dosage: UNK
     Route: 061
     Dates: start: 20080731

REACTIONS (8)
  - SKIN DISCOLOURATION [None]
  - PAIN IN EXTREMITY [None]
  - OEDEMA PERIPHERAL [None]
  - DEEP VEIN THROMBOSIS [None]
  - MENTAL DISORDER [None]
  - VENOUS INSUFFICIENCY [None]
  - TELANGIECTASIA [None]
  - COLLATERAL CIRCULATION [None]
